FAERS Safety Report 13375473 (Version 1)
Quarter: 2017Q1

REPORT INFORMATION
  Report Type: Report from Study
  Country: US (occurrence: BR)
  Receive Date: 20170327
  Receipt Date: 20170327
  Transmission Date: 20170429
  Serious: Yes (Other)
  Sender: FDA-Public Use
  Company Number: US-SUNOVION-2017SUN001300

PATIENT
  Sex: Female
  Weight: 74 kg

DRUGS (1)
  1. INDACATEROL AND GLYCOPYRROLATE [Suspect]
     Active Substance: GLYCOPYRROLATE\INDACATEROL MALEATE
     Indication: ASTHMA
     Dosage: 1 DF (GLYCOPYRRONIUM 50 UG AND INDACATEROL 110 UG), UNK
     Route: 055
     Dates: start: 20170308

REACTIONS (3)
  - Glaucoma [Unknown]
  - Product use issue [Unknown]
  - Memory impairment [Unknown]
